FAERS Safety Report 9269407 (Version 1)
Quarter: 2013Q2

REPORT INFORMATION
  Report Type: Report from Study
  Country: CN (occurrence: CN)
  Receive Date: 20130503
  Receipt Date: 20130503
  Transmission Date: 20140414
  Serious: Yes (Hospitalization, Other)
  Sender: FDA-Public Use
  Company Number: CN-BAYER-2013-015175

PATIENT
  Age: 66 Year
  Sex: Male

DRUGS (7)
  1. NEXAVAR [Suspect]
     Indication: HEPATIC CANCER METASTATIC
     Dosage: 800 MG/DAY
     Dates: start: 201011
  2. NEXAVAR [Suspect]
     Indication: HEPATIC CANCER METASTATIC
     Dosage: 200 MG, BID
     Dates: start: 20101202, end: 20101202
  3. NEXAVAR [Suspect]
     Indication: HEPATIC CANCER METASTATIC
     Dosage: DAILY DOSE 600 MG
     Dates: start: 20101204, end: 20101205
  4. NEXAVAR [Suspect]
     Indication: HEPATIC CANCER METASTATIC
     Dosage: 400 MG, BID
     Dates: start: 20101206, end: 20120131
  5. NEXAVAR [Suspect]
     Indication: HEPATIC CANCER METASTATIC
     Dosage: 200 MG, BID
     Dates: start: 20130205, end: 20130206
  6. NEXAVAR [Suspect]
     Indication: HEPATIC CANCER METASTATIC
     Dosage: 200 MG, BID
     Dates: start: 20130305, end: 20130312
  7. NEXAVAR [Suspect]
     Indication: HEPATIC CANCER METASTATIC
     Dosage: 200 MG, QD
     Dates: start: 20130418, end: 20130423

REACTIONS (4)
  - Cardiac failure [Not Recovered/Not Resolved]
  - Dyspnoea [Not Recovered/Not Resolved]
  - Pleural effusion [None]
  - Ascites [Recovered/Resolved]
